FAERS Safety Report 15990721 (Version 2)
Quarter: 2019Q4

REPORT INFORMATION
  Report Type: Spontaneous
  Country: CA (occurrence: CA)
  Receive Date: 20190221
  Receipt Date: 20191008
  Transmission Date: 20200122
  Serious: Yes (Hospitalization)
  Sender: FDA-Public Use
  Company Number: CA-TEVA-2019-CA-1013771

PATIENT
  Age: 35 Year
  Sex: Male

DRUGS (12)
  1. TEMAZEPAM. [Suspect]
     Active Substance: TEMAZEPAM
     Indication: POOR QUALITY SLEEP
     Route: 065
  2. LITHIUM. [Interacting]
     Active Substance: LITHIUM
     Dosage: UP TO 900MG; EVERY NIGHT AT BEDTIME
     Route: 048
  3. OXAZEPAM. [Suspect]
     Active Substance: OXAZEPAM
     Indication: POOR QUALITY SLEEP
     Route: 065
  4. SERTRALINE [Concomitant]
     Active Substance: SERTRALINE HYDROCHLORIDE
     Indication: DEPRESSED MOOD
     Route: 065
  5. VORTIOXETINE. [Concomitant]
     Active Substance: VORTIOXETINE
     Dosage: EVERY NIGHT AT BEDTIME
     Route: 048
  6. BENZATROPINE [Concomitant]
     Active Substance: BENZTROPINE
     Indication: DYSTONIC TREMOR
     Dosage: REGULAR
     Route: 065
  7. QUETIAPINE. [Suspect]
     Active Substance: QUETIAPINE
     Indication: POOR QUALITY SLEEP
     Route: 065
  8. CLONAZEPAM. [Suspect]
     Active Substance: CLONAZEPAM
     Indication: POOR QUALITY SLEEP
     Route: 065
  9. ARIPIPRAZOLE. [Interacting]
     Active Substance: ARIPIPRAZOLE
     Route: 048
  10. ZOPICLONE [Suspect]
     Active Substance: ZOPICLONE
     Indication: POOR QUALITY SLEEP
     Route: 065
  11. ARIPIPRAZOLE. [Interacting]
     Active Substance: ARIPIPRAZOLE
     Dosage: DEPOT
     Route: 030
  12. NOZINAN [Interacting]
     Active Substance: LEVOMEPROMAZINE
     Indication: POOR QUALITY SLEEP
     Route: 065

REACTIONS (4)
  - Dystonic tremor [Recovering/Resolving]
  - Restlessness [Unknown]
  - Drug interaction [Recovering/Resolving]
  - Drug ineffective [Unknown]
